FAERS Safety Report 5996710-5 (Version None)
Quarter: 2008Q4

REPORT INFORMATION
  Report Type: 
  Country: None (occurrence: None)
  Receive Date: 20081212
  Receipt Date: 20081023
  Transmission Date: 20090506
  Serious: No
  Sender: FDA-Public Use
  Company Number: US-ABBOTT-08P-163-0483477-00

PATIENT
  Sex: Female
  Weight: 72.64 kg

DRUGS (4)
  1. HUMIRA [Suspect]
     Indication: PSORIASIS
     Route: 058
     Dates: start: 20080701
  2. HYDROCORTISONE [Concomitant]
     Indication: PSORIASIS
     Route: 061
  3. BISELECT [Concomitant]
     Indication: BLOOD PRESSURE
     Dosage: 10/6.25MG DAILY
     Route: 048
  4. THOMAPYRIN N [Concomitant]
     Indication: HEADACHE
     Route: 048

REACTIONS (10)
  - CHEST DISCOMFORT [None]
  - CHEST PAIN [None]
  - FATIGUE [None]
  - GAIT DISTURBANCE [None]
  - HYPOAESTHESIA [None]
  - LICHEN PLANUS [None]
  - MOUTH HAEMORRHAGE [None]
  - PAIN IN EXTREMITY [None]
  - PARAESTHESIA ORAL [None]
  - WEIGHT INCREASED [None]
